FAERS Safety Report 9104792 (Version 3)
Quarter: 2013Q2

REPORT INFORMATION
  Report Type: Report from Study
  Country: AU (occurrence: AU)
  Receive Date: 20130220
  Receipt Date: 20130412
  Transmission Date: 20140414
  Serious: Yes (Hospitalization, Other)
  Sender: FDA-Public Use
  Company Number: AU-ROCHE-1192082

PATIENT
  Age: 59 Year
  Sex: Male
  Weight: 72 kg

DRUGS (10)
  1. ACTEMRA [Suspect]
     Indication: RHEUMATOID ARTHRITIS
     Route: 042
     Dates: start: 20121120
  2. ACTEMRA [Suspect]
     Route: 042
  3. NEXIUM [Concomitant]
     Dosage: START DATE: 2 YEARS AGO
     Route: 048
  4. FOSAMAX [Concomitant]
     Indication: OSTEOPOROSIS
     Dosage: START DATE: 3 WEEKS AGO
     Route: 048
  5. PREDNISONE [Concomitant]
     Indication: INFLAMMATION
     Dosage: START DATE: 2 YEARS AGO
     Route: 048
  6. ARAVA [Concomitant]
     Dosage: START DATE: 1.5 YEARS AGO
     Route: 048
  7. LIPITOR [Concomitant]
     Indication: BLOOD CHOLESTEROL INCREASED
     Route: 048
     Dates: start: 20130207
  8. PANADEINE FORTE [Concomitant]
     Indication: ANALGESIC THERAPY
     Dosage: START DATE: 18 MONTHS AGO
     Route: 048
  9. ENDEP [Concomitant]
     Indication: SEDATION
     Route: 065
  10. CLOPIDOGREL [Concomitant]

REACTIONS (8)
  - Pain in jaw [Unknown]
  - Neck pain [Unknown]
  - Chest pain [Recovering/Resolving]
  - Low density lipoprotein increased [Unknown]
  - Diarrhoea [Unknown]
  - Headache [Recovered/Resolved]
  - Oropharyngeal pain [Recovered/Resolved]
  - Abdominal pain [Recovered/Resolved]
